FAERS Safety Report 7341262-0 (Version None)
Quarter: 2011Q1

REPORT INFORMATION
  Report Type: 
  Country: None (occurrence: None)
  Receive Date: 20110309
  Receipt Date: 20110228
  Transmission Date: 20110831
  Serious: Yes (Hospitalization, Other)
  Sender: FDA-Public Use
  Company Number: PHHY2010US77363

PATIENT
  Sex: Female

DRUGS (3)
  1. EXTAVIA [Suspect]
     Indication: MULTIPLE SCLEROSIS
     Dosage: 0.25 MG, QOD
     Route: 058
     Dates: start: 20100816, end: 20100818
  2. EXTAVIA [Suspect]
     Dosage: UNK
     Route: 058
     Dates: start: 20100818
  3. EXTAVIA [Suspect]
     Dosage: 0.3 MG, QD
     Route: 058
     Dates: start: 20101101, end: 20101227

REACTIONS (5)
  - URINARY TRACT INFECTION [None]
  - ROCKY MOUNTAIN SPOTTED FEVER [None]
  - PNEUMONIA [None]
  - DIARRHOEA [None]
  - INJECTION SITE ERYTHEMA [None]
